FAERS Safety Report 8499425-7 (Version None)
Quarter: 2012Q3

REPORT INFORMATION
  Report Type: 
  Country: None (occurrence: None)
  Receive Date: 20120710
  Receipt Date: 20120702
  Transmission Date: 20120928
  Serious: Yes (Hospitalization)
  Sender: FDA-Public Use
  Company Number: US-US-EMD SERONO, INC.-230461J10USA

PATIENT
  Sex: Female
  Weight: 77 kg

DRUGS (12)
  1. NEXIUM [Concomitant]
     Indication: GASTRIC DISORDER
  2. LOVASTATIN [Concomitant]
     Indication: BLOOD CHOLESTEROL INCREASED
  3. ZOMIG [Concomitant]
     Indication: MIGRAINE
     Dates: start: 20040101
  4. CALCIUM [Concomitant]
     Indication: PRODUCT USED FOR UNKNOWN INDICATION
  5. REMERON [Concomitant]
     Indication: DEPRESSION
  6. TYLENOL W/ CODEINE NO. 3 [Concomitant]
     Indication: MUSCULOSKELETAL PAIN
  7. MOTRIN [Concomitant]
     Indication: MUSCULOSKELETAL PAIN
  8. REBIF [Suspect]
     Indication: MULTIPLE SCLEROSIS
     Route: 058
     Dates: start: 20030819
  9. ATENOLOL [Concomitant]
     Indication: HYPERTENSION
  10. LISINOPRIL [Concomitant]
     Indication: PRODUCT USED FOR UNKNOWN INDICATION
     Dates: end: 20100101
  11. SOLU-MEDROL [Concomitant]
     Indication: MULTIPLE SCLEROSIS
  12. NAPROSYN [Concomitant]
     Indication: MUSCULOSKELETAL PAIN

REACTIONS (4)
  - BLOOD POTASSIUM DECREASED [None]
  - PERICARDITIS [None]
  - ATRIAL FIBRILLATION [None]
  - MIGRAINE [None]
